FAERS Safety Report 5606349-9 (Version None)
Quarter: 2008Q1

REPORT INFORMATION
  Report Type: 
  Country: None (occurrence: None)
  Receive Date: 20080129
  Receipt Date: 20070710
  Transmission Date: 20080703
  Serious: No
  Sender: FDA-Public Use
  Company Number: A0664065A

PATIENT
  Sex: Male

DRUGS (1)
  1. WELLBUTRIN [Suspect]
     Indication: BIPOLAR DISORDER
     Route: 048

REACTIONS (4)
  - EXCESSIVE MASTURBATION [None]
  - LIBIDO INCREASED [None]
  - SEXUAL DYSFUNCTION [None]
  - VICTIM OF SEXUAL ABUSE [None]
